FAERS Safety Report 6220277-X (Version None)
Quarter: 2009Q2

REPORT INFORMATION
  Report Type: 
  Country: None (occurrence: None)
  Receive Date: 20090605
  Receipt Date: 20090525
  Transmission Date: 20091009
  Serious: Yes (Hospitalization)
  Sender: FDA-Public Use
  Company Number: 230122K08CAN

PATIENT
  Age: 50 Year
  Sex: Female

DRUGS (2)
  1. REBIF [Suspect]
     Indication: RELAPSING-REMITTING MULTIPLE SCLEROSIS
     Dosage: 22 MCG, 3 IN 1 WEEKS, SUBCUTANEOUS; 44 MCG, 3 IN 1 WEEKS SUBCUTANEOUS
     Route: 058
     Dates: start: 20081118, end: 20090115
  2. REBIF [Suspect]
     Indication: RELAPSING-REMITTING MULTIPLE SCLEROSIS
     Dosage: 22 MCG, 3 IN 1 WEEKS, SUBCUTANEOUS; 44 MCG, 3 IN 1 WEEKS SUBCUTANEOUS
     Route: 058
     Dates: start: 20090115, end: 20090225

REACTIONS (11)
  - CHILLS [None]
  - DIARRHOEA [None]
  - FEELING ABNORMAL [None]
  - HEADACHE [None]
  - HEPATIC ENZYME INCREASED [None]
  - MALAISE [None]
  - NEPHROLITHIASIS [None]
  - PAIN [None]
  - POLYDIPSIA [None]
  - UNEVALUABLE EVENT [None]
  - VOMITING [None]
